FAERS Safety Report 15992041 (Version 1)
Quarter: 2019Q1

REPORT INFORMATION
  Report Type: Spontaneous
  Country: GB (occurrence: GB)
  Receive Date: 20190221
  Receipt Date: 20190221
  Transmission Date: 20190418
  Serious: Yes (Other)
  Sender: FDA-Public Use
  Company Number: GB-NOVOPROD-258929

PATIENT
  Age: 46 Year
  Sex: Female

DRUGS (1)
  1. TRISEQUENS FORTE [Suspect]
     Active Substance: ESTRADIOL HEMIHYDRATE\NORETHINDRONE ACETATE
     Indication: PRODUCT USED FOR UNKNOWN INDICATION
     Dosage: 5 MG, QD
     Route: 048
     Dates: start: 20060519, end: 20060904

REACTIONS (1)
  - Hypercholesterolaemia [Recovered/Resolved]
